FAERS Safety Report 17191068 (Version 2)
Quarter: 2020Q1

REPORT INFORMATION
  Report Type: Spontaneous
  Country: CA (occurrence: CA)
  Receive Date: 20191223
  Receipt Date: 20200123
  Transmission Date: 20200409
  Serious: Yes (Life-Threatening, Hospitalization)
  Sender: FDA-Public Use
  Company Number: CA-AMERICAN REGENT INC-2019002863

PATIENT
  Age: 33 Year
  Sex: Female

DRUGS (1)
  1. VENOFER [Suspect]
     Active Substance: IRON SUCROSE
     Indication: ANAEMIA
     Dosage: 250 MILLILITER INFUSED OVER 1 HOUR
     Route: 042

REACTIONS (5)
  - Hyperhidrosis [Recovered/Resolved]
  - Troponin increased [Recovered/Resolved]
  - Electrocardiogram T wave inversion [Recovered/Resolved]
  - Dyspnoea [Recovered/Resolved]
  - Electrocardiogram ST segment depression [Recovered/Resolved]
